FAERS Safety Report 4322694-1 (Version None)
Quarter: 2004Q1

REPORT INFORMATION
  Report Type: 
  Country: None (occurrence: None)
  Receive Date: 20040319
  Receipt Date: 20040309
  Transmission Date: 20041129
  Serious: Yes (Hospitalization)
  Sender: FDA-Public Use
  Company Number: JP-JNJFOC-20040301927

PATIENT
  Age: 77 Year
  Sex: Female

DRUGS (5)
  1. LEVOFLOXACIN [Suspect]
     Indication: BRONCHITIS ACUTE
     Dosage: 500 MG, ORAL
     Route: 048
     Dates: start: 20040223, end: 20040226
  2. LASIX (TABLETS) FUROSEMIDE [Concomitant]
  3. TRINIPLAS (PATCH) GLYCERYL TRINITRATE PATCH [Concomitant]
  4. NAPRILENE (ENALAPRIL MALEATE) TABLETS [Concomitant]
  5. ENOXAPARIN SODIUM [Concomitant]

REACTIONS (1)
  - RHABDOMYOLYSIS [None]
